FAERS Safety Report 5333230-5 (Version None)
Quarter: 2007Q2

REPORT INFORMATION
  Report Type: 
  Country: None (occurrence: None)
  Receive Date: 20070521
  Receipt Date: 20070521
  Transmission Date: 20071010
  Serious: Yes (Hospitalization)
  Sender: FDA-Public Use
  Company Number: None

PATIENT
  Sex: Male
  Weight: 115 kg

DRUGS (5)
  1. CISPLATIN [Suspect]
     Dosage: 177 MG
     Dates: end: 20070501
  2. ACTOS [Concomitant]
  3. DECADRON [Concomitant]
  4. GLUCOPHAGE [Concomitant]
  5. GLYBURIDE [Concomitant]

REACTIONS (1)
  - BLOOD GLUCOSE INCREASED [None]
